FAERS Safety Report 12463310 (Version 1)
Quarter: 2016Q2

REPORT INFORMATION
  Report Type: Spontaneous
  Country: US (occurrence: None)
  Receive Date: 20160613
  Receipt Date: 20160613
  Transmission Date: 20160815
  Serious: Yes (Other)
  Sender: FDA-Public Use
  Company Number: None

PATIENT
  Age: 78 Year
  Sex: Female
  Weight: 68.04 kg

DRUGS (7)
  1. PRALUENT [Suspect]
     Active Substance: ALIROCUMAB
     Indication: TYPE IIA HYPERLIPIDAEMIA
     Dosage: 1 INJECTION(S) EVERY 2 WEEKS GIVEN INTO/UNDER THE SKIN
     Route: 058
     Dates: start: 20160524, end: 20160609
  2. CQ10 FOLATE [Concomitant]
  3. IMDUR [Concomitant]
     Active Substance: ISOSORBIDE MONONITRATE
  4. ACIDPHEX [Concomitant]
  5. NOVASC [Concomitant]
  6. ASPIRIN. [Concomitant]
     Active Substance: ASPIRIN
  7. CQ 10 [Concomitant]

REACTIONS (7)
  - Pruritus [None]
  - Injection site swelling [None]
  - Swelling face [None]
  - Allergic cough [None]
  - Lip swelling [None]
  - Injection site warmth [None]
  - Mouth swelling [None]

NARRATIVE: CASE EVENT DATE: 20160608
